FAERS Safety Report 19533805 (Version 1)
Quarter: 2021Q3

REPORT INFORMATION
  Report Type: Spontaneous
  Country: US (occurrence: US)
  Receive Date: 20210714
  Receipt Date: 20210714
  Transmission Date: 20211014
  Serious: No
  Sender: FDA-Public Use
  Company Number: US-APOTEX-2021AP014972

PATIENT
  Age: 69 Year
  Sex: Male

DRUGS (28)
  1. OLANZAPINE. [Suspect]
     Active Substance: OLANZAPINE
     Indication: SLEEP DISORDER
     Dosage: UNK
     Route: 065
     Dates: start: 201612, end: 201701
  2. TEMAZEPAM. [Concomitant]
     Active Substance: TEMAZEPAM
     Indication: RESTLESS LEGS SYNDROME
  3. CODEINE [Concomitant]
     Active Substance: CODEINE
     Indication: RESTLESS LEGS SYNDROME
     Dosage: 30 MILLIGRAM, Q.H.S.
     Route: 065
     Dates: start: 201703, end: 201803
  4. GABAPENTIN. [Suspect]
     Active Substance: GABAPENTIN
     Indication: INSOMNIA
     Dosage: 800 MG IN THE MORNING AND 3200 MG AT BEDTIME
     Route: 065
     Dates: start: 201611, end: 201701
  5. GABAPENTIN. [Suspect]
     Active Substance: GABAPENTIN
     Indication: RESTLESS LEGS SYNDROME
     Dosage: 800 MG IN THE MORNING AND 1600 MG AT BEDTIMEUNK
     Route: 065
     Dates: end: 201808
  6. ROPINIROLE. [Concomitant]
     Active Substance: ROPINIROLE
     Dosage: 6 MILLIGRAM, TID
     Route: 065
     Dates: start: 201908, end: 201912
  7. LAMOTRIGINE. [Concomitant]
     Active Substance: LAMOTRIGINE
     Indication: BIPOLAR I DISORDER
     Dosage: 100 MG AM, 200 MG PM
     Route: 065
     Dates: start: 201803
  8. ROPINIROLE. [Concomitant]
     Active Substance: ROPINIROLE
     Dosage: 8 MILLIGRAM, TID
     Route: 065
     Dates: start: 202001
  9. CARBIDOPA/LEVODOPA [Concomitant]
     Active Substance: CARBIDOPA\LEVODOPA
     Dosage: 1 DOSAGE FORM, QID
     Route: 065
     Dates: start: 201806, end: 201903
  10. QUETIAPINE. [Concomitant]
     Active Substance: QUETIAPINE
     Indication: SLEEP DISORDER
     Dosage: UNK
     Route: 065
     Dates: start: 201612, end: 201701
  11. ROPINIROLE. [Concomitant]
     Active Substance: ROPINIROLE
     Indication: RESTLESS LEGS SYNDROME
     Dosage: 0.5 MILLIGRAM, Q.H.S.
     Route: 065
  12. FLUOXETINE [Concomitant]
     Active Substance: FLUOXETINE HYDROCHLORIDE
     Indication: RESTLESS LEGS SYNDROME
  13. PRAMIPEXOLE. [Concomitant]
     Active Substance: PRAMIPEXOLE
     Indication: INSOMNIA
     Dosage: 0.375 MILLIGRAM, QD
     Route: 065
     Dates: start: 201611, end: 201707
  14. PRAMIPEXOLE. [Concomitant]
     Active Substance: PRAMIPEXOLE
     Indication: RESTLESS LEGS SYNDROME
  15. LAMOTRIGINE. [Concomitant]
     Active Substance: LAMOTRIGINE
     Indication: RESTLESS LEGS SYNDROME
     Dosage: 150 MILLIGRAM, Q.H.S.
     Route: 065
  16. DIVALPROEX [Concomitant]
     Active Substance: DIVALPROEX SODIUM
     Indication: AFFECTIVE DISORDER
     Dosage: 1500 MILLIGRAM, Q.H.S.
     Route: 065
     Dates: start: 201701, end: 201802
  17. GABAPENTIN. [Suspect]
     Active Substance: GABAPENTIN
     Indication: SLEEP DISORDER
  18. FLUOXETINE [Concomitant]
     Active Substance: FLUOXETINE HYDROCHLORIDE
     Indication: INSOMNIA
     Dosage: 40 MILLIGRAM, QD
     Route: 065
     Dates: start: 201611, end: 201612
  19. TRAZODONE [Concomitant]
     Active Substance: TRAZODONE HYDROCHLORIDE
     Indication: INSOMNIA
     Dosage: 200 MILLIGRAM, Q.H.S.
     Route: 065
     Dates: start: 201611, end: 201611
  20. TRAZODONE [Concomitant]
     Active Substance: TRAZODONE HYDROCHLORIDE
     Indication: RESTLESS LEGS SYNDROME
  21. TEMAZEPAM. [Concomitant]
     Active Substance: TEMAZEPAM
     Indication: INSOMNIA
     Dosage: 15 TO 30 MG AS NEEDED
     Route: 065
     Dates: start: 201611, end: 201611
  22. ROPINIROLE. [Concomitant]
     Active Substance: ROPINIROLE
     Dosage: 4 MILLIGRAM, BID
     Route: 065
     Dates: start: 201807, end: 201903
  23. CARBIDOPA/LEVODOPA [Concomitant]
     Active Substance: CARBIDOPA\LEVODOPA
     Indication: RESTLESS LEGS SYNDROME
     Dosage: 1 DOSAGE FORM, BID
     Route: 065
     Dates: start: 201803, end: 201805
  24. LAMOTRIGINE. [Concomitant]
     Active Substance: LAMOTRIGINE
     Indication: INSOMNIA
     Dosage: 100 MILLIGRAM, BID
     Route: 065
     Dates: start: 201611
  25. DIVALPROEX [Concomitant]
     Active Substance: DIVALPROEX SODIUM
     Indication: BIPOLAR I DISORDER
     Dosage: 1000 MILLIGRAM, Q.H.S.
     Route: 065
     Dates: start: 201803
  26. ROPINIROLE. [Concomitant]
     Active Substance: ROPINIROLE
     Dosage: 6 MILLIGRAM, Q.H.S.
     Route: 065
     Dates: start: 201707, end: 201805
  27. ROPINIROLE. [Concomitant]
     Active Substance: ROPINIROLE
     Dosage: 4 MILLIGRAM, TID
     Route: 065
     Dates: start: 201904, end: 201907
  28. CARBIDOPA/LEVODOPA [Concomitant]
     Active Substance: CARBIDOPA\LEVODOPA
     Dosage: 2 DOSAGE FORM, TID
     Route: 065
     Dates: start: 201904, end: 202009

REACTIONS (4)
  - Restless legs syndrome [Unknown]
  - Drug ineffective [Unknown]
  - Intentional product misuse [Unknown]
  - Oedema peripheral [Unknown]
